FAERS Safety Report 21895319 (Version 4)
Quarter: 2025Q1

REPORT INFORMATION
  Report Type: Spontaneous
  Country: GR (occurrence: GR)
  Receive Date: 20230123
  Receipt Date: 20250205
  Transmission Date: 20250408
  Serious: Yes (Death, Hospitalization)
  Sender: ROCHE
  Company Number: None

PATIENT
  Age: 73 Year
  Sex: Female

DRUGS (6)
  1. RITUXIMAB [Suspect]
     Active Substance: RITUXIMAB
     Indication: Rheumatoid arthritis
     Route: 040
  2. OBINUTUZUMAB [Concomitant]
     Active Substance: OBINUTUZUMAB
     Route: 040
  3. LEVOTHYROXINE [Concomitant]
     Active Substance: LEVOTHYROXINE
  4. IRBESARTAN [Concomitant]
     Active Substance: IRBESARTAN
  5. METOPROLOL [Concomitant]
     Active Substance: METOPROLOL
  6. ROSUVASTATIN [Concomitant]
     Active Substance: ROSUVASTATIN

REACTIONS (3)
  - Post-acute COVID-19 syndrome [Fatal]
  - Acute respiratory distress syndrome [Fatal]
  - Sepsis [Fatal]
